FAERS Safety Report 6662240-0 (Version None)
Quarter: 2010Q1

REPORT INFORMATION
  Report Type: 
  Country: None (occurrence: None)
  Receive Date: 20100331
  Receipt Date: 20100318
  Transmission Date: 20100710
  Serious: Yes (Other)
  Sender: FDA-Public Use
  Company Number: CA-PFIZER INC-2010025332

PATIENT
  Age: 73 Year
  Sex: Female

DRUGS (2)
  1. LYRICA [Suspect]
     Indication: PAIN
     Dosage: 25 MG, 1X/DAY AT BEDTIME
     Route: 048
     Dates: start: 20090310, end: 20090301
  2. TRAMADOL [Concomitant]
     Indication: PAIN
     Dosage: 200 MG, 1X/DAY
     Dates: start: 20090310

REACTIONS (1)
  - HYPERSENSITIVITY [None]
